FAERS Safety Report 6572307-3 (Version None)
Quarter: 2010Q1

REPORT INFORMATION
  Report Type: 
  Country: None (occurrence: None)
  Receive Date: 20100205
  Receipt Date: 20100127
  Transmission Date: 20100710
  Serious: Yes (Other)
  Sender: FDA-Public Use
  Company Number: US-WYE-H13274910

PATIENT
  Sex: Female

DRUGS (2)
  1. PREMARIN [Suspect]
     Indication: SEXUAL DYSFUNCTION
     Dosage: DAILY, DOSE UNKNOWN
     Route: 067
  2. PREMARIN [Suspect]
     Dosage: 1.25 MG, TWO, DAILY
     Route: 048

REACTIONS (5)
  - DRUG WITHDRAWAL SYNDROME [None]
  - INSOMNIA [None]
  - IRRITABILITY [None]
  - MOOD ALTERED [None]
  - NEOPLASM MALIGNANT [None]
